FAERS Safety Report 4383624-X (Version None)
Quarter: 2004Q2

REPORT INFORMATION
  Report Type: 
  Country: None (occurrence: None)
  Receive Date: 20040623
  Receipt Date: 20040615
  Transmission Date: 20050107
  Serious: Yes (Other)
  Sender: FDA-Public Use
  Company Number: PHNR2004AU01045

PATIENT
  Age: 65 Year
  Sex: Male

DRUGS (1)
  1. LAMISIL [Suspect]
     Dosage: 250 MG, QD
     Route: 048
     Dates: start: 20020401

REACTIONS (4)
  - BRONCHOSPASM [None]
  - CONCOMITANT DISEASE AGGRAVATED [None]
  - COUGH [None]
  - DYSPHONIA [None]
